FAERS Safety Report 19481164 (Version 1)
Quarter: 2021Q2

REPORT INFORMATION
  Report Type: Spontaneous
  Country: US (occurrence: US)
  Receive Date: 20210630
  Receipt Date: 20210630
  Transmission Date: 20210717
  Serious: No
  Sender: FDA-Public Use
  Company Number: None

PATIENT
  Age: 74 Year
  Sex: Female
  Weight: 99.79 kg

DRUGS (3)
  1. ALENDRONATE SODIUM. [Suspect]
     Active Substance: ALENDRONATE SODIUM
     Indication: OSTEOPOROSIS
     Dosage: ?          QUANTITY:1 PILL;OTHER ROUTE:MOUTH W./8OZ WATER?
     Dates: start: 20210523, end: 20210523
  2. VITAMIN D3 [Concomitant]
     Active Substance: CHOLECALCIFEROL
  3. LOSARTIN [Concomitant]
     Active Substance: LOSARTAN

REACTIONS (7)
  - Stomatitis [None]
  - Oral discomfort [None]
  - Dry mouth [None]
  - Toothache [None]
  - Oral pain [None]
  - Glossodynia [None]
  - Lip pain [None]

NARRATIVE: CASE EVENT DATE: 20210523
